FAERS Safety Report 17668978 (Version 1)
Quarter: 2020Q2

REPORT INFORMATION
  Report Type: Spontaneous
  Country: US (occurrence: US)
  Receive Date: 20200415
  Receipt Date: 20200415
  Transmission Date: 20200713
  Serious: Yes (Other)
  Sender: FDA-Public Use
  Company Number: US-ACCORD-178827

PATIENT
  Age: 3 Year
  Sex: Female

DRUGS (5)
  1. CISPLATIN. [Suspect]
     Active Substance: CISPLATIN
     Indication: MEDULLOBLASTOMA
     Dosage: DAILY DURING RADIATION THERAPY FOR 30 DOSES,(50% DOSE REDUCTION FOR CYCLES 5, 7, AND 8)
     Route: 042
  2. CARBOPLATIN. [Suspect]
     Active Substance: CARBOPLATIN
     Indication: MEDULLOBLASTOMA
     Dosage: 30 DOSES (ADDED)
     Route: 042
  3. LOMUSTINE. [Suspect]
     Active Substance: LOMUSTINE
     Indication: MEDULLOBLASTOMA
     Dosage: DAY 1 OF EACH CYCLE (50% DOSE REDUCTION FOR CYCLE 8)
     Route: 048
  4. CYCLOPHOSPHAMIDE/CYCLOPHOSPHAMIDE MONOHYDRATE [Suspect]
     Active Substance: CYCLOPHOSPHAMIDE
     Indication: MEDULLOBLASTOMA
     Dosage: DAYS 1 AND 2 OF EACH CYCLE
     Route: 042
  5. MESNA. [Suspect]
     Active Substance: MESNA
     Dosage: GIVEN AT 4 AND AGAIN AT 8 HOURS AFTER CYCLOPHOSPHAMIDE
     Route: 042

REACTIONS (3)
  - Thrombocytopenia [Unknown]
  - Off label use [Unknown]
  - Deafness neurosensory [Unknown]
